FAERS Safety Report 10545695 (Version 1)
Quarter: 2014Q4

REPORT INFORMATION
  Report Type: Report from Study
  Country: US (occurrence: US)
  Receive Date: 20141027
  Receipt Date: 20141027
  Transmission Date: 20150529
  Serious: No
  Sender: FDA-Public Use
  Company Number: US-ABBVIE-14P-163-1257998-00

PATIENT
  Sex: Female
  Weight: 86.26 kg

DRUGS (1)
  1. LUPRON DEPOT [Suspect]
     Active Substance: LEUPROLIDE ACETATE
     Indication: UTERINE LEIOMYOMA
     Dates: start: 2012

REACTIONS (4)
  - Abdominal distension [Unknown]
  - Swelling [Unknown]
  - Fatigue [Unknown]
  - Uterine leiomyoma [Unknown]
